FAERS Safety Report 6567454-6 (Version None)
Quarter: 2010Q1

REPORT INFORMATION
  Report Type: 
  Country: None (occurrence: None)
  Receive Date: 20100127
  Receipt Date: 20100118
  Transmission Date: 20100710
  Serious: Yes (Other)
  Sender: FDA-Public Use
  Company Number: ALL1-2010-00237

PATIENT
  Age: 8 Year
  Sex: Male
  Weight: 45.8 kg

DRUGS (1)
  1. VYVANSE [Suspect]
     Indication: ATTENTION DEFICIT/HYPERACTIVITY DISORDER
     Dosage: 70 MG, 1X/DAY:QD,ORAL
     Route: 048
     Dates: start: 20091102, end: 20091217

REACTIONS (7)
  - ANTISOCIAL BEHAVIOUR [None]
  - DECREASED APPETITE [None]
  - FATIGUE [None]
  - ONYCHOPHAGIA [None]
  - SELF ESTEEM DECREASED [None]
  - SUICIDAL IDEATION [None]
  - WEIGHT DECREASED [None]
